FAERS Safety Report 6207668-8 (Version None)
Quarter: 2009Q2

REPORT INFORMATION
  Report Type: 
  Country: None (occurrence: None)
  Receive Date: 20090528
  Receipt Date: 20090514
  Transmission Date: 20091009
  Serious: Yes (Life-Threatening)
  Sender: FDA-Public Use
  Company Number: FR-GENENTECH-273090

PATIENT
  Sex: Female

DRUGS (20)
  1. BEVACIZUMAB [Suspect]
     Indication: BREAST CANCER
     Dosage: 1220 MG, Q21D
     Route: 042
     Dates: start: 20081016, end: 20081106
  2. FLUOROURACIL [Suspect]
     Indication: BREAST CANCER
     Dosage: 940 MG, QD
     Route: 065
     Dates: start: 20081106, end: 20081106
  3. EPIRUBICIN [Suspect]
     Indication: BREAST CANCER
     Dosage: 188 MG, QD
     Dates: start: 20081106, end: 20081106
  4. CYCLOPHOSPHAMIDE [Suspect]
     Indication: BREAST CANCER
     Dosage: 940 MG, QD
     Route: 065
     Dates: start: 20081106, end: 20081106
  5. PAROXETINE HCL [Concomitant]
     Indication: DRUG USE FOR UNKNOWN INDICATION
     Dosage: UNK
     Dates: start: 19850101
  6. PRAVASTATIN [Concomitant]
     Indication: DRUG USE FOR UNKNOWN INDICATION
     Dosage: UNK
     Dates: start: 19930101
  7. LEVOTHYROX [Concomitant]
     Indication: DRUG USE FOR UNKNOWN INDICATION
     Dosage: UNK
     Dates: start: 20050101
  8. APREPITANT [Concomitant]
     Indication: DRUG USE FOR UNKNOWN INDICATION
     Dosage: UNK
     Dates: start: 20081016, end: 20091127
  9. PREDNISOLONE [Concomitant]
     Indication: DRUG USE FOR UNKNOWN INDICATION
     Dosage: UNK
     Dates: start: 20081125, end: 20081127
  10. ROXITHROMYCINE [Concomitant]
     Indication: DRUG USE FOR UNKNOWN INDICATION
     Dosage: UNK
     Dates: start: 20081125, end: 20081201
  11. VENTOLIN [Concomitant]
     Indication: DRUG USE FOR UNKNOWN INDICATION
     Dosage: UNK
     Dates: start: 20081125, end: 20081201
  12. BECOTIDE [Concomitant]
     Indication: DRUG USE FOR UNKNOWN INDICATION
     Dosage: UNK MG, UNK
     Dates: start: 20081125, end: 20081201
  13. METOPIMAZINE [Concomitant]
     Indication: DRUG USE FOR UNKNOWN INDICATION
     Dosage: UNK
     Dates: start: 20081106, end: 20081109
  14. ONDANSETRON HCL [Concomitant]
     Indication: DRUG USE FOR UNKNOWN INDICATION
     Dosage: UNK
     Dates: start: 20081106, end: 20081106
  15. SOLU-MEDROL [Concomitant]
     Indication: DRUG USE FOR UNKNOWN INDICATION
     Dosage: UNK
     Dates: start: 20081106, end: 20081106
  16. DEXRAZOXANE [Concomitant]
     Indication: DRUG USE FOR UNKNOWN INDICATION
     Dosage: UNK
     Dates: start: 20081106, end: 20081106
  17. BISOPROLOL [Concomitant]
     Indication: DRUG USE FOR UNKNOWN INDICATION
     Dosage: UNK MG, UNK
     Dates: start: 19980101, end: 20081217
  18. SPIRONOLACTONE [Concomitant]
     Indication: DRUG USE FOR UNKNOWN INDICATION
     Dosage: UNK
     Dates: start: 19980101, end: 20081217
  19. ALTHIAZIDE [Concomitant]
     Indication: DRUG USE FOR UNKNOWN INDICATION
     Dosage: UNK MG, UNK
     Dates: start: 19980101, end: 20081217
  20. PARACETAMOL [Concomitant]
     Indication: DRUG USE FOR UNKNOWN INDICATION
     Dosage: UNK

REACTIONS (3)
  - ATRIAL FIBRILLATION [None]
  - CARDIAC FAILURE [None]
  - LEFT VENTRICULAR DYSFUNCTION [None]
